FAERS Safety Report 7085492-4 (Version None)
Quarter: 2010Q4

REPORT INFORMATION
  Report Type: 
  Country: None (occurrence: None)
  Receive Date: 20101105
  Receipt Date: 20101103
  Transmission Date: 20110411
  Serious: Yes (Hospitalization)
  Sender: FDA-Public Use
  Company Number: DE-PFIZER INC-2010091837

PATIENT
  Age: 63 Year
  Sex: Male

DRUGS (14)
  1. *PREDNISONE [Suspect]
     Indication: PROSTATE CANCER
     Dosage: 5 MG, 2X/DAY
     Route: 048
     Dates: start: 20100429
  2. BLINDED *NO SUBJECT DRUG [Suspect]
     Indication: PROSTATE CANCER
     Dosage: 37.5 MG, 1X/DAY
     Route: 048
     Dates: start: 20100429
  3. BLINDED *PLACEBO [Suspect]
     Indication: PROSTATE CANCER
     Dosage: 37.5 MG, 1X/DAY
     Route: 048
     Dates: start: 20100429
  4. SUNITINIB MALATE [Suspect]
     Indication: PROSTATE CANCER
     Dosage: 37.5 MG, 1X/DAY
     Route: 048
     Dates: start: 20100429
  5. AMLODIPINE [Concomitant]
     Dosage: 10 MG, 1X/DAY
     Route: 048
     Dates: start: 20100510
  6. METOCLOPRAMIDE [Concomitant]
     Dosage: 20 DF, AS NEEDED
     Route: 048
     Dates: start: 20090401
  7. CALCIUM [Concomitant]
     Dosage: UNK
     Route: 048
     Dates: start: 20100706
  8. CLOPIDOGREL [Concomitant]
     Dosage: 75 MG, 1X/DAY
     Route: 048
     Dates: start: 20100706
  9. PANTOPRAZOLE SODIUM [Concomitant]
     Dosage: 20 MG, 1X/DAY
     Route: 048
     Dates: start: 20100706
  10. COLECALCIFEROL [Concomitant]
     Dosage: 500 IU, 1X/DAY
     Route: 048
     Dates: start: 20100706
  11. LIDOCAINE [Concomitant]
     Dosage: UNK
     Route: 048
     Dates: start: 20100706
  12. DREISAFER [Concomitant]
  13. FOLATE [Concomitant]
  14. VITAMIN B-12 [Concomitant]

REACTIONS (4)
  - ANAL ULCER [None]
  - HAEMOGLOBIN DECREASED [None]
  - MICTURITION DISORDER [None]
  - PAIN [None]
